FAERS Safety Report 7565826-4 (Version None)
Quarter: 2011Q2

REPORT INFORMATION
  Report Type: 
  Country: None (occurrence: None)
  Receive Date: 20110623
  Receipt Date: 20110617
  Transmission Date: 20111010
  Serious: No
  Sender: FDA-Public Use
  Company Number: US-PFIZER INC-2011134191

PATIENT
  Sex: Male
  Weight: 95.2 kg

DRUGS (1)
  1. DEPO-TESTOSTERONE [Suspect]
     Indication: BLOOD TESTOSTERONE DECREASED
     Dosage: 150 MG, UNK
     Route: 030
     Dates: start: 20100101, end: 20110601

REACTIONS (2)
  - RASH [None]
  - DERMATITIS ACNEIFORM [None]
